FAERS Safety Report 8603952 (Version 2)
Quarter: 2013Q2

REPORT INFORMATION
  Report Type: Spontaneous
  Country: US (occurrence: US)
  Receive Date: 20120608
  Receipt Date: 20130621
  Transmission Date: 20140414
  Serious: No
  Sender: FDA-Public Use
  Company Number: US-ASTRAZENECA-2012SE35014

PATIENT
  Age: 70 Year
  Sex: Female

DRUGS (14)
  1. NEXIUM [Suspect]
     Indication: GASTROOESOPHAGEAL REFLUX DISEASE
     Route: 048
     Dates: start: 2003, end: 20100501
  2. NEXIUM [Suspect]
     Indication: ACQUIRED OESOPHAGEAL WEB
     Route: 048
     Dates: start: 2003, end: 20100501
  3. NEXIUM [Suspect]
     Indication: GASTROOESOPHAGEAL REFLUX DISEASE
     Route: 048
     Dates: start: 200506
  4. NEXIUM [Suspect]
     Indication: ACQUIRED OESOPHAGEAL WEB
     Route: 048
     Dates: start: 200506
  5. PROTONIX [Concomitant]
     Dates: start: 20030411
  6. ESTROGEN [Concomitant]
     Indication: HORMONE REPLACEMENT THERAPY
  7. PROGESTERON [Concomitant]
     Indication: HORMONE REPLACEMENT THERAPY
  8. LEVOTHYROXINE [Concomitant]
     Indication: THYROID DISORDER
     Dates: start: 2012
  9. SIMVASTATIN [Concomitant]
     Indication: BLOOD CHOLESTEROL ABNORMAL
     Dosage: THREE PILL A WEAK
     Dates: start: 2012
  10. CALCIUM [Concomitant]
  11. MAGNESIUM [Concomitant]
  12. MULTIPLE VITAMIN [Concomitant]
     Dosage: DAILY
  13. VITAMIN E [Concomitant]
  14. COQ 10 VITAMIN [Concomitant]
     Indication: BLOOD CHOLESTEROL ABNORMAL
     Dosage: FEW TIMES A WEEK

REACTIONS (9)
  - Osteoporosis [Unknown]
  - Multiple fractures [Unknown]
  - Bone disorder [Unknown]
  - Bone loss [Unknown]
  - Oesophageal dilatation [Unknown]
  - Cataract [Unknown]
  - Chronic obstructive pulmonary disease [Unknown]
  - Vitamin D deficiency [Unknown]
  - Osteopenia [Unknown]
